FAERS Safety Report 14801006 (Version 2)
Quarter: 2024Q4

REPORT INFORMATION
  Report Type: Spontaneous
  Country: PT (occurrence: PT)
  Receive Date: 20180424
  Receipt Date: 20241220
  Transmission Date: 20250115
  Serious: No
  Sender: ROCHE
  Company Number: PT-PFM-2018-03026

PATIENT

DRUGS (2)
  1. TRASTUZUMAB [Suspect]
     Active Substance: TRASTUZUMAB
     Indication: Breast cancer metastatic
     Dosage: UNKNOWN
     Route: 058
     Dates: start: 20180202, end: 201803
  2. NAVELBINE [Suspect]
     Active Substance: VINORELBINE TARTRATE
     Indication: Breast cancer metastatic
     Dosage: FREQUENCY TEXT:WEEKLY
     Route: 048
     Dates: start: 20180202, end: 201803

REACTIONS (2)
  - Ischaemic neuropathy [Unknown]
  - Aortic thrombosis [Unknown]
